FAERS Safety Report 5069223-5 (Version None)
Quarter: 2006Q3

REPORT INFORMATION
  Report Type: 
  Country: None (occurrence: None)
  Receive Date: 20060803
  Receipt Date: 20060724
  Transmission Date: 20061208
  Serious: Yes (Hospitalization)
  Sender: FDA-Public Use
  Company Number: FR-JNJFOC-20060704697

PATIENT
  Age: 15 Year
  Sex: Male

DRUGS (3)
  1. REMICADE [Suspect]
     Route: 062
  2. REMICADE [Suspect]
     Indication: ENTEROCOLITIS HAEMORRHAGIC
     Route: 062
  3. BACTRIM DS [Suspect]
     Indication: PROPHYLAXIS
     Route: 048

REACTIONS (1)
  - EOSINOPHILIC PNEUMONIA [None]
